FAERS Safety Report 14318669 (Version 2)
Quarter: 2018Q2

REPORT INFORMATION
  Report Type: Spontaneous
  Country: JP (occurrence: JP)
  Receive Date: 20171222
  Receipt Date: 20180427
  Transmission Date: 20180711
  Serious: Yes (Hospitalization, Other)
  Sender: FDA-Public Use
  Company Number: JP-ELI_LILLY_AND_COMPANY-JP201712007432AA

PATIENT
  Age: 66 Year
  Sex: Male

DRUGS (4)
  1. LANTUS [Suspect]
     Active Substance: INSULIN GLARGINE
     Indication: TYPE 1 DIABETES MELLITUS
     Dosage: 16 IU, BEFORE SLEEP
     Route: 058
  2. HUMALOG [Suspect]
     Active Substance: INSULIN LISPRO
     Dosage: 25 IU,  BEFORE EACH MEAL
     Route: 058
  3. HUMALOG [Suspect]
     Active Substance: INSULIN LISPRO
     Indication: TYPE 1 DIABETES MELLITUS
     Dosage: 7 IU, BEFORE EACH MEAL
     Route: 058
  4. LANTUS [Suspect]
     Active Substance: INSULIN GLARGINE
     Dosage: 25 IU, BEFORE SLEEP

REACTIONS (2)
  - Hypoglycaemia [Recovering/Resolving]
  - Cutaneous amyloidosis [Recovered/Resolved]
